FAERS Safety Report 5328370-0 (Version None)
Quarter: 2007Q2

REPORT INFORMATION
  Report Type: 
  Country: None (occurrence: None)
  Receive Date: 20070515
  Receipt Date: 20070515
  Transmission Date: 20071010
  Serious: Yes (Other)
  Sender: FDA-Public Use
  Company Number: None

PATIENT
  Age: 59 Year
  Sex: Male
  Weight: 81.6475 kg

DRUGS (1)
  1. REGLAN [Suspect]
     Indication: ABDOMINAL PAIN UPPER
     Dosage: BID
     Dates: start: 20061115, end: 20070115

REACTIONS (3)
  - NECK PAIN [None]
  - PAIN IN JAW [None]
  - TONGUE DISORDER [None]
